FAERS Safety Report 12067971 (Version 2)
Quarter: 2017Q1

REPORT INFORMATION
  Report Type: Spontaneous
  Country: US (occurrence: US)
  Receive Date: 20160210
  Receipt Date: 20170209
  Transmission Date: 20170428
  Serious: No
  Sender: FDA-Public Use
  Company Number: US-ALLERGAN-1524252US

PATIENT
  Sex: Female

DRUGS (4)
  1. BOTOX [Suspect]
     Active Substance: ONABOTULINUMTOXINA
     Indication: SKIN WRINKLING
  2. JUVEDERM [Concomitant]
     Active Substance: HYALURONIC ACID
     Indication: SKIN WRINKLING
     Dosage: UNK
     Dates: start: 20150817, end: 20150817
  3. JUVEDERM [Concomitant]
     Active Substance: HYALURONIC ACID
     Indication: SKIN WRINKLING
  4. BOTOX [Suspect]
     Active Substance: ONABOTULINUMTOXINA
     Indication: SKIN WRINKLING
     Dosage: UNK UNK, SINGLE
     Route: 030
     Dates: start: 20150817, end: 20150817

REACTIONS (6)
  - Off label use [Unknown]
  - Injection site discomfort [Unknown]
  - Injection site rash [Unknown]
  - Rash macular [Unknown]
  - Injection site bruising [Unknown]
  - Drug ineffective [Unknown]
